FAERS Safety Report 12953745 (Version 2)
Quarter: 2016Q4

REPORT INFORMATION
  Report Type: Report from Study
  Country: US (occurrence: US)
  Receive Date: 20161117
  Receipt Date: 20161202
  Transmission Date: 20170207
  Serious: No
  Sender: FDA-Public Use
  Company Number: US-AMGEN-USASL2016154803

PATIENT
  Age: 21 Year
  Sex: Female

DRUGS (2)
  1. ENBREL [Suspect]
     Active Substance: ETANERCEPT
     Indication: PSORIASIS
     Dosage: 50 MG, 2 TIMES/WK
     Route: 065
     Dates: start: 20161004
  2. ENBREL [Suspect]
     Active Substance: ETANERCEPT
     Indication: PSORIASIS

REACTIONS (9)
  - Hypersensitivity [Unknown]
  - Heart rate increased [Unknown]
  - Pruritus [Unknown]
  - Injection site mass [Unknown]
  - Urticaria [Unknown]
  - Nervousness [Unknown]
  - Tremor [Unknown]
  - Feeling hot [Unknown]
  - Feeling jittery [Unknown]

NARRATIVE: CASE EVENT DATE: 2016
